FAERS Safety Report 10189477 (Version 1)
Quarter: 2014Q2

REPORT INFORMATION
  Report Type: Spontaneous
  Country: GB (occurrence: GB)
  Receive Date: 20140522
  Receipt Date: 20140522
  Transmission Date: 20141212
  Serious: Yes (Disabling, Other)
  Sender: FDA-Public Use
  Company Number: GB-PFIZER INC-2014137393

PATIENT
  Age: 40 Year
  Sex: Female
  Weight: 92 kg

DRUGS (5)
  1. SERTRALINE HCL [Suspect]
     Indication: PAIN
     Dosage: 100 MG, UNK
     Route: 048
     Dates: start: 20131227
  2. SERTRALINE HCL [Suspect]
     Dosage: 150 MG, UNK
     Route: 048
     Dates: end: 20140319
  3. AMITRIPTYLINE [Suspect]
     Indication: PAIN
     Dosage: 10 MG, UNK
  4. AMITRIPTYLINE [Suspect]
     Dosage: 35 MG, UNK
  5. CERELLE [Concomitant]
     Dosage: UNK

REACTIONS (8)
  - Suicidal ideation [Not Recovered/Not Resolved]
  - Urinary incontinence [Recovered/Resolved]
  - Decreased appetite [Recovering/Resolving]
  - Apathy [Not Recovered/Not Resolved]
  - Feeling abnormal [Recovering/Resolving]
  - Mental impairment [Recovering/Resolving]
  - Neglect of personal appearance [Unknown]
  - Asthenia [Unknown]
